FAERS Safety Report 20163813 (Version 1)
Quarter: 2021Q4

REPORT INFORMATION
  Report Type: Spontaneous
  Country: US (occurrence: US)
  Receive Date: 20211209
  Receipt Date: 20211209
  Transmission Date: 20220303
  Serious: Yes (Other)
  Sender: FDA-Public Use
  Company Number: US-LUPIN PHARMACEUTICALS INC.-2021-23999

PATIENT
  Age: 22 Year
  Sex: Female

DRUGS (2)
  1. BETAMETHASONE [Suspect]
     Active Substance: BETAMETHASONE
     Indication: Maternal therapy to enhance foetal lung maturity
     Dosage: UNK
     Route: 065
  2. AMPHOTERICIN B [Suspect]
     Active Substance: AMPHOTERICIN B
     Indication: Coccidioidomycosis
     Dosage: UNK
     Route: 065

REACTIONS (7)
  - Maternal exposure during pregnancy [Unknown]
  - Premature delivery [Unknown]
  - Hypoxia [Unknown]
  - Pneumothorax [Unknown]
  - Cerebral infarction [Unknown]
  - Apallic syndrome [Unknown]
  - Endometritis decidual [Unknown]
